FAERS Safety Report 8517294-3 (Version None)
Quarter: 2012Q3

REPORT INFORMATION
  Report Type: 
  Country: None (occurrence: None)
  Receive Date: 20120718
  Receipt Date: 20120713
  Transmission Date: 20120928
  Serious: Yes (Other)
  Sender: FDA-Public Use
  Company Number: US-PFIZER INC-2012152549

PATIENT
  Sex: Female
  Weight: 102.4 kg

DRUGS (5)
  1. ABILIFY [Concomitant]
     Dosage: UNK
  2. ALPRAZOLAM [Concomitant]
     Dosage: UNK
  3. PRISTIQ [Concomitant]
     Indication: DEPRESSION
     Dosage: UNK
  4. LYRICA [Suspect]
     Indication: MYALGIA
     Dosage: UNK
     Dates: start: 20070101
  5. LYRICA [Suspect]
     Indication: FIBROMYALGIA

REACTIONS (6)
  - BRAIN INJURY [None]
  - HYPOXIA [None]
  - MALAISE [None]
  - COMA [None]
  - BRAIN HYPOXIA [None]
  - BLISTER [None]
